FAERS Safety Report 10255867 (Version 1)
Quarter: 2014Q2

REPORT INFORMATION
  Report Type: Spontaneous
  Country: US (occurrence: None)
  Receive Date: 20140522
  Receipt Date: 20140522
  Transmission Date: 20141212
  Serious: No
  Sender: FDA-Public Use
  Company Number: 1000053316

PATIENT
  Age: 79 Year
  Sex: Female

DRUGS (8)
  1. TUDORZA PRESSAIR (ACLIDINIUM BROMIDE) (400 MICROGRAM, POWDER) [Suspect]
     Indication: CHRONIC OBSTRUCTIVE PULMONARY DISEASE
     Route: 055
     Dates: start: 201401
  2. LASIX (FUROSEMIDE) [Concomitant]
  3. POTASSIUM [Concomitant]
  4. FLUOXETINE [Concomitant]
  5. ASPIRIN (ACETYLSALICYLIC ACID) [Concomitant]
  6. PREMARIN (ESTROGENS CONJUGATED) [Concomitant]
  7. CALCIUM [Concomitant]
  8. MIRALAX (POLYETHYLENE GLYCOL) [Concomitant]

REACTIONS (1)
  - Abdominal distension [None]
